FAERS Safety Report 8896822 (Version 1)
Quarter: 2012Q4

REPORT INFORMATION
  Report Type: Spontaneous
  Country: US (occurrence: None)
  Receive Date: 20121102
  Receipt Date: 20121102
  Transmission Date: 20130627
  Serious: Yes (Life-Threatening, Other)
  Sender: FDA-Public Use
  Company Number: E2B_00000413

PATIENT
  Age: 62 Year
  Weight: 88.91 kg

DRUGS (3)
  1. LEVETIRACETAM [Suspect]
     Indication: SEIZURES
     Dosage: 1000 mg (500 mg, 2 in 1 d), per oral
     Route: 048
     Dates: start: 20120918, end: 20120926
  2. LORAZEPAM [Concomitant]
  3. ALBUTEROL [Concomitant]

REACTIONS (8)
  - Depression [None]
  - Suicidal ideation [None]
  - Vomiting [None]
  - Dizziness [None]
  - Fatigue [None]
  - Asthenia [None]
  - Hallucination, auditory [None]
  - Insomnia [None]
